FAERS Safety Report 8384793-7 (Version None)
Quarter: 2012Q2

REPORT INFORMATION
  Report Type: 
  Country: None (occurrence: None)
  Receive Date: 20120524
  Receipt Date: 20120517
  Transmission Date: 20120825
  Serious: No
  Sender: FDA-Public Use
  Company Number: US-ASTRAZENECA-2012SE32043

PATIENT
  Age: 63 Year
  Sex: Male

DRUGS (6)
  1. SEROQUEL XR [Suspect]
     Dosage: 700 MG UP TO ALMOST 900 MG
     Route: 048
     Dates: start: 20090101
  2. SEROQUEL XR [Suspect]
     Route: 048
  3. SEROQUEL XR [Suspect]
     Route: 048
  4. SEROQUEL XR [Suspect]
     Indication: INSOMNIA
     Route: 048
     Dates: start: 20100101
  5. SEROQUEL XR [Suspect]
     Indication: BIPOLAR DISORDER
     Route: 048
     Dates: start: 20100101
  6. SEROQUEL XR [Suspect]
     Dosage: 700 MG UP TO ALMOST 900 MG
     Route: 048
     Dates: start: 20090101

REACTIONS (4)
  - HYPERPHAGIA [None]
  - DRUG INEFFECTIVE [None]
  - AFFECTIVE DISORDER [None]
  - DRY MOUTH [None]
